FAERS Safety Report 5348579-X (Version None)
Quarter: 2007Q2

REPORT INFORMATION
  Report Type: 
  Country: None (occurrence: None)
  Receive Date: 20070606
  Receipt Date: 20070531
  Transmission Date: 20071010
  Serious: Yes (Other)
  Sender: FDA-Public Use
  Company Number: FI-PFIZER INC-2007044273

PATIENT
  Sex: Male

DRUGS (1)
  1. CELEBRA [Suspect]
     Route: 048
     Dates: start: 20070301, end: 20070101

REACTIONS (1)
  - ERYTHEMA NODOSUM [None]
